FAERS Safety Report 12301146 (Version 2)
Quarter: 2016Q2

REPORT INFORMATION
  Report Type: Spontaneous
  Country: US (occurrence: US)
  Receive Date: 20160425
  Receipt Date: 20160427
  Transmission Date: 20160815
  Serious: Yes (Other)
  Sender: FDA-Public Use
  Company Number: US-TEVA-653975USA

PATIENT
  Sex: Male

DRUGS (1)
  1. ZECUITY [Suspect]
     Active Substance: SUMATRIPTAN SUCCINATE
     Route: 062

REACTIONS (8)
  - Wrong technique in product usage process [Unknown]
  - Application site burn [Unknown]
  - Application site pain [Unknown]
  - Application site pruritus [Unknown]
  - Application site paraesthesia [Unknown]
  - Device battery issue [Unknown]
  - Application site discolouration [Unknown]
  - Drug ineffective [Unknown]
